FAERS Safety Report 6191822-8 (Version None)
Quarter: 2009Q2

REPORT INFORMATION
  Report Type: 
  Country: None (occurrence: None)
  Receive Date: 20090515
  Receipt Date: 20090506
  Transmission Date: 20091009
  Serious: Yes (Other)
  Sender: FDA-Public Use
  Company Number: US-AMGEN-US345985

PATIENT
  Sex: Male

DRUGS (5)
  1. NPLATE [Suspect]
     Indication: IDIOPATHIC THROMBOCYTOPENIC PURPURA
     Route: 065
     Dates: start: 20080926, end: 20090126
  2. CORTICOSTEROIDS [Concomitant]
     Route: 065
  3. RITUXIMAB [Concomitant]
     Route: 065
  4. IMMUNOGLOBULINS [Concomitant]
     Route: 042
  5. DANAZOL [Concomitant]
     Route: 065

REACTIONS (1)
  - DRUG INEFFECTIVE [None]
